FAERS Safety Report 9508812 (Version 1)
Quarter: 2013Q3

REPORT INFORMATION
  Report Type: Spontaneous
  Country: US (occurrence: US)
  Receive Date: 20130909
  Receipt Date: 20130909
  Transmission Date: 20140515
  Serious: No
  Sender: FDA-Public Use
  Company Number: US-BRISTOL-MYERS SQUIBB COMPANY-17418245

PATIENT
  Age: 45 Year
  Sex: Male
  Weight: 115.64 kg

DRUGS (6)
  1. ABILIFY [Suspect]
     Indication: BIPOLAR DISORDER
     Dosage: LAST DOSE:23FEB2013?RX: 1409528
  2. DEPAKOTE [Concomitant]
     Dosage: 5 TABLETS AT BEDTIME
  3. COGENTIN [Concomitant]
     Dosage: 1MG AT BEDTIME
  4. FLUOXETINE [Concomitant]
     Dosage: 1 TABLET IN THE MORNING
  5. DIVALPROEX [Concomitant]
     Dosage: 5 TABS AT BEDTIME.
  6. BENZTROPINE [Concomitant]
     Dosage: AT BEDTIME

REACTIONS (3)
  - Rash [Recovered/Resolved]
  - Swelling [Recovered/Resolved]
  - Pruritus [Unknown]
